FAERS Safety Report 23470353 (Version 1)
Quarter: 2024Q1

REPORT INFORMATION
  Report Type: Spontaneous
  Country: US (occurrence: None)
  Receive Date: 20240130
  Receipt Date: 20240130
  Transmission Date: 20240410
  Serious: Yes (Hospitalization)
  Sender: FDA-Public Use
  Company Number: None

PATIENT
  Age: 63 Year
  Sex: Female

DRUGS (2)
  1. CASTOR OIL [Suspect]
     Active Substance: CASTOR OIL
     Indication: Dry eye
     Dosage: OTHER QUANTITY : 1.014 OUNCE(S);?
     Route: 047
     Dates: start: 20230601, end: 20230701
  2. MSM [Suspect]
     Active Substance: DIMETHYL SULFONE

REACTIONS (7)
  - Visual acuity reduced [None]
  - Recalled product administered [None]
  - Eye swelling [None]
  - Skin burning sensation [None]
  - Skin discolouration [None]
  - Skin exfoliation [None]
  - Foreign body sensation in eyes [None]

NARRATIVE: CASE EVENT DATE: 20240126
